FAERS Safety Report 20864384 (Version 2)
Quarter: 2022Q3

REPORT INFORMATION
  Report Type: Report from Study
  Country: US (occurrence: US)
  Receive Date: 20220523
  Receipt Date: 20220908
  Transmission Date: 20221026
  Serious: Yes (Hospitalization)
  Sender: FDA-Public Use
  Company Number: US-BRISTOL-MYERS SQUIBB COMPANY-2022-037457

PATIENT
  Age: 54 Year
  Sex: Male
  Weight: 92.5 kg

DRUGS (1)
  1. REVLIMID [Suspect]
     Active Substance: LENALIDOMIDE
     Indication: Plasma cell myeloma
     Dosage: REVLIMID 10MG CAPSULES (BATCH NUMBER:A3735A; EXP.DATE: 31-AUG-2024)
     Route: 065

REACTIONS (3)
  - Headache [Unknown]
  - Hyperhidrosis [Unknown]
  - Rhinovirus infection [Unknown]

NARRATIVE: CASE EVENT DATE: 20220825
